FAERS Safety Report 8535625-5 (Version None)
Quarter: 2012Q3

REPORT INFORMATION
  Report Type: 
  Country: None (occurrence: None)
  Receive Date: 20120725
  Receipt Date: 20120723
  Transmission Date: 20120928
  Serious: No
  Sender: FDA-Public Use
  Company Number: US-PFIZER INC-2012178813

PATIENT
  Sex: Female
  Weight: 78.9 kg

DRUGS (13)
  1. RISPERIDONE [Concomitant]
     Indication: SLEEP DISORDER
     Dosage: 1 MG, AS NEEDED
  2. CHONDROITIN/GLUCOSAMINE [Concomitant]
     Indication: ARTHROPATHY
     Dosage: UNK, 2X/DAY
  3. TRILEPTAL [Concomitant]
     Indication: BIPOLAR DISORDER
     Dosage: ONE TABLET OF 200MG IN MORNING AND TWO TABLETS OF 200 MG AT NIGHT
     Route: 048
  4. IRON [Concomitant]
     Dosage: 65 MG, 2X/DAY
  5. COLACE [Concomitant]
     Indication: CONSTIPATION
     Dosage: UNK
  6. PREMARIN [Concomitant]
     Dosage: 0.1 MG, UNK
  7. LYRICA [Suspect]
     Indication: FIBROMYALGIA
     Dosage: 225 MG, 3X/DAY
     Dates: end: 20120401
  8. MAGNESIUM [Concomitant]
     Indication: BONE DISORDER
     Dosage: 400 MG, 2X/DAY
  9. OMEPRAZOLE [Concomitant]
     Indication: GASTROOESOPHAGEAL REFLUX DISEASE
     Dosage: 20 MG, 1X/DAY
  10. MOTRIN [Suspect]
     Indication: PAIN
     Dosage: 800 MG, AS NEEDED
  11. LOPRESSOR [Concomitant]
     Indication: BLOOD PRESSURE ABNORMAL
     Dosage: UNK
  12. DIAZEPAM [Concomitant]
     Indication: ANXIETY
     Dosage: 5 MG, AS NEEDED
  13. LISINOPRIL [Concomitant]
     Indication: BLOOD PRESSURE ABNORMAL
     Dosage: 5 MG, 1X/DAY

REACTIONS (3)
  - PAIN [None]
  - DRUG INEFFECTIVE [None]
  - SWELLING [None]
